FAERS Safety Report 8415084-3 (Version None)
Quarter: 2012Q2

REPORT INFORMATION
  Report Type: 
  Country: None (occurrence: None)
  Receive Date: 20120606
  Receipt Date: 20120528
  Transmission Date: 20120825
  Serious: Yes (Death, Hospitalization)
  Sender: FDA-Public Use
  Company Number: SE-JNJFOC-20100603725

PATIENT
  Age: 63 Year
  Sex: Male

DRUGS (14)
  1. FELODIPINE [Concomitant]
     Route: 065
     Dates: end: 20100301
  2. FELODIPINE [Concomitant]
     Route: 065
  3. OMEPRAZOLE [Concomitant]
     Route: 065
  4. CALCICHEW-D3 [Concomitant]
     Dosage: 500 MG/400 IE
     Route: 065
  5. TIPAROL [Concomitant]
     Route: 065
  6. CYCLOSPORINE [Concomitant]
     Indication: PRODUCT USED FOR UNKNOWN INDICATION
     Route: 065
     Dates: start: 20100215, end: 20100331
  7. METHOTREXATE SODIUM [Concomitant]
     Indication: PRODUCT USED FOR UNKNOWN INDICATION
     Route: 065
     Dates: start: 20100215, end: 20100331
  8. ALVEDON [Concomitant]
     Route: 065
     Dates: end: 20100301
  9. PREDNISOLONE [Concomitant]
     Route: 065
  10. FUROSEMIDE [Concomitant]
     Route: 065
  11. REMICADE [Suspect]
     Indication: PSORIATIC ARTHROPATHY
     Route: 042
     Dates: start: 20100218, end: 20100331
  12. KETOPROFEN [Concomitant]
     Route: 065
     Dates: end: 20100301
  13. OPTINATE SEPTIMUM [Concomitant]
     Route: 065
  14. FOLIC ACID [Concomitant]
     Route: 065

REACTIONS (3)
  - MYOCARDIAL INFARCTION [None]
  - ATRIOVENTRICULAR BLOCK COMPLETE [None]
  - ARTERIOSCLEROSIS CORONARY ARTERY [None]
